FAERS Safety Report 4711004-3 (Version None)
Quarter: 2005Q3

REPORT INFORMATION
  Report Type: 
  Country: None (occurrence: None)
  Receive Date: 20050711
  Receipt Date: 20050704
  Transmission Date: 20060218
  Serious: Yes (Other)
  Sender: FDA-Public Use
  Company Number: PHBS2005SE09559

PATIENT
  Sex: Female

DRUGS (1)
  1. COMBIPATCH [Suspect]
     Dosage: 50 UG, 250 UG
     Route: 062

REACTIONS (3)
  - MYELOFIBROSIS [None]
  - SPLENIC INFARCTION [None]
  - SPLENOMEGALY [None]
